APPROVED DRUG PRODUCT: SKIN EXPOSURE REDUCTION PASTE AGAINST CHEMICAL WARFARE AGENTS
Active Ingredient: PERFLUOROPOLYMETHYLISOPROPYL ETHER; POLYTETRAFLUOROETHYLENE
Strength: 50%;50%
Dosage Form/Route: PASTE;TOPICAL
Application: N021084 | Product #001
Applicant: US ARMY MEDICAL RESEARCH AND MATERIAL COMMAND
Approved: Feb 17, 2000 | RLD: No | RS: No | Type: DISCN